FAERS Safety Report 8071372-4 (Version None)
Quarter: 2012Q1

REPORT INFORMATION
  Report Type: 
  Country: None (occurrence: None)
  Receive Date: 20120125
  Receipt Date: 20120112
  Transmission Date: 20120608
  Serious: Yes (Hospitalization)
  Sender: FDA-Public Use
  Company Number: DE-ROCHE-1025500

PATIENT
  Sex: Male
  Weight: 77.9 kg

DRUGS (11)
  1. TACROLIMUS [Suspect]
     Indication: RENAL TRANSPLANT
     Dosage: LAST DOSE PRIOR TO SAE 10/DEC/2011
     Route: 048
     Dates: start: 20111210
  2. DEKRISTOL [Concomitant]
     Dosage: 1 DOSE FORM /MONTH
     Route: 065
  3. MYCOPHENOLATE MOFETIL (CELLCEPT) [Suspect]
     Indication: RENAL TRANSPLANT
     Dosage: LAST DOSE PRIOR TO SAE 10/JAN/2012
     Route: 048
     Dates: start: 20110413, end: 20120111
  4. REPAGLINID [Concomitant]
     Route: 065
  5. TACROLIMUS [Suspect]
     Dosage: LAST DOSE PRIOR TO SAE 10/JAN/2012
     Route: 048
     Dates: start: 20110413
  6. METFORMIN HCL [Concomitant]
     Route: 065
  7. BICANORM [Concomitant]
     Route: 065
  8. BASILIXIMAB [Suspect]
     Indication: RENAL TRANSPLANT
     Dosage: LAST DOSE PRIOR TO SAE 17/APR/2011
     Route: 042
     Dates: start: 20110413
  9. PANTOPRAZOLE [Concomitant]
     Route: 065
  10. PREDNISOLONE [Suspect]
     Indication: RENAL TRANSPLANT
     Dosage: DRUG REPORTED:SOLU DECORTIN,LAST DOSE PRIOR TO SAE 16/DEC/2011
     Route: 048
     Dates: start: 20110413
  11. FLUVASTATIN [Concomitant]
     Route: 065

REACTIONS (1)
  - TRANSPLANT REJECTION [None]
